FAERS Safety Report 8856743 (Version 1)
Quarter: 2012Q4

REPORT INFORMATION
  Report Type: 
  Country: US (occurrence: US)
  Receive Date: 20121023
  Receipt Date: 20121023
  Transmission Date: 20130627
  Serious: No
  Sender: FDA-Public Use
  Company Number: US-AMGEN-USASP2012056743

PATIENT
  Age: 59 Year
  Sex: Female

DRUGS (20)
  1. ENBREL [Suspect]
     Indication: PRODUCT USED FOR UNKNOWN INDICATION
     Dosage: 50 mg, UNK
  2. GABAPENTIN [Concomitant]
     Dosage: 100 mg, UNK
     Route: 048
  3. METHOTREXATE [Concomitant]
     Dosage: 2.5 mg, UNK
     Route: 048
  4. SYNTHROID [Concomitant]
     Dosage: 100 mcgUNK
     Route: 050
  5. WELLBUTRIN [Concomitant]
     Dosage: 100 mg, UNK
     Route: 048
  6. VITAMIN D /00107901/ [Concomitant]
     Dosage: 1000 unit, UNK
     Route: 048
  7. FOLIC ACID [Concomitant]
     Dosage: 1 mg, UNK
     Route: 048
  8. HYDROCOBAMINE [Concomitant]
     Dosage: 7.5-325 UNK, UNK
     Route: 048
  9. FOSAMAX [Concomitant]
     Dosage: 5 mg, UNK
     Route: 048
  10. ASTELIN                            /00085801/ [Concomitant]
     Dosage: 137 mcg NA, UNK
  11. VOLTAREN                           /00372301/ [Concomitant]
     Dosage: 1 % EX
  12. MULTIVITAMIN                       /00097801/ [Concomitant]
     Route: 048
  13. B COMPLEX                          /00212701/ [Concomitant]
     Route: 048
  14. MELATONIN [Concomitant]
     Dosage: 3 mg, UNK
     Route: 048
  15. ALCLOMETASONE [Concomitant]
     Dosage: 0.05% EX
  16. PREDNISONE [Concomitant]
     Dosage: 10 mg, UNK
     Route: 048
  17. MAGNESIUM [Concomitant]
     Dosage: 300 mg, UNK
     Route: 048
  18. AVELOX [Concomitant]
     Dosage: 400 mg, UNK
     Route: 048
  19. FISH OIL [Concomitant]
     Route: 048
  20. CO ENZYME Q10                      /00517201/ [Concomitant]
     Dosage: 50 mg, UNK

REACTIONS (1)
  - Sinusitis [Unknown]
